FAERS Safety Report 10184900 (Version 1)
Quarter: 2014Q2

REPORT INFORMATION
  Report Type: Spontaneous
  Country: IT (occurrence: IT)
  Receive Date: 20140521
  Receipt Date: 20140521
  Transmission Date: 20141212
  Serious: Yes (Life-Threatening)
  Sender: FDA-Public Use
  Company Number: IT-MYLANLABS-2014S1010717

PATIENT
  Age: 52 Year
  Sex: Female

DRUGS (4)
  1. PACLITAXEL [Suspect]
     Indication: BREAST CANCER
     Dosage: 130 MG CYCLICAL
     Route: 042
     Dates: start: 20140408, end: 20140408
  2. TAVOR [Concomitant]
     Indication: PRODUCT USED FOR UNKNOWN INDICATION
  3. LEPONEX [Concomitant]
     Indication: PRODUCT USED FOR UNKNOWN INDICATION
  4. EUTIROX [Concomitant]
     Indication: PRODUCT USED FOR UNKNOWN INDICATION

REACTIONS (4)
  - Cough [Recovered/Resolved]
  - Pruritus [Recovered/Resolved]
  - Rash [Recovered/Resolved]
  - Respiratory failure [Recovered/Resolved]
